FAERS Safety Report 6587893-7 (Version None)
Quarter: 2010Q1

REPORT INFORMATION
  Report Type: 
  Country: None (occurrence: None)
  Receive Date: 20100201
  Receipt Date: 20090401
  Transmission Date: 20100710
  Serious: Yes (Other)
  Sender: FDA-Public Use
  Company Number: LMI-2009-00062

PATIENT
  Age: 43 Year
  Sex: Female
  Weight: 71.2147 kg

DRUGS (4)
  1. CARDIOLITE [Suspect]
     Indication: CARDIAC STRESS TEST
     Dosage: 10.8 MCI IN 0.9 NS (10.8 MILLICURIES), INTRAVENOUS BOLUS
     Route: 040
     Dates: start: 20090401, end: 20090401
  2. CARDIOLITE [Suspect]
     Indication: CHEST PAIN
     Dosage: 10.8 MCI IN 0.9 NS (10.8 MILLICURIES), INTRAVENOUS BOLUS
     Route: 040
     Dates: start: 20090401, end: 20090401
  3. ESTRADIOL [Concomitant]
  4. ZANTAC [Concomitant]

REACTIONS (4)
  - DYSPNOEA [None]
  - HYPERSENSITIVITY [None]
  - PHARYNGEAL OEDEMA [None]
  - URTICARIA [None]
